FAERS Safety Report 6652233-1 (Version None)
Quarter: 2010Q1

REPORT INFORMATION
  Report Type: 
  Country: None (occurrence: None)
  Receive Date: 20100325
  Receipt Date: 20100313
  Transmission Date: 20100710
  Serious: Yes (Hospitalization)
  Sender: FDA-Public Use
  Company Number: US-PFIZER INC-2007068436

PATIENT
  Sex: Male
  Weight: 144.22 kg

DRUGS (15)
  1. SUNITINIB MALATE [Suspect]
     Indication: METASTATIC RENAL CELL CARCINOMA
     Dosage: 50 MG, 1X/DAY
     Route: 048
     Dates: start: 20070313, end: 20070814
  2. ACETYLSALICYLIC ACID [Concomitant]
     Route: 048
     Dates: start: 20010101
  3. AMBIEN [Concomitant]
     Route: 048
     Dates: start: 20070724
  4. COREG [Concomitant]
     Dosage: 6.25
     Route: 048
     Dates: start: 20010101
  5. BENAZEPRIL HYDROCHLORIDE [Concomitant]
     Route: 048
     Dates: start: 20010101
  6. PLAVIX [Concomitant]
     Route: 048
     Dates: start: 20060808, end: 20070815
  7. LYRICA [Concomitant]
     Route: 048
     Dates: start: 20070101
  8. LASIX [Concomitant]
     Route: 048
     Dates: start: 20070601
  9. POTASSIUM [Concomitant]
     Route: 048
     Dates: start: 20070601
  10. ALLOPURINOL [Concomitant]
     Route: 048
     Dates: start: 20070724
  11. GLYBURIDE [Concomitant]
     Route: 048
     Dates: start: 20070724
  12. PRAVASTATIN [Concomitant]
     Dosage: EVERY NIGHT
     Route: 048
     Dates: start: 20070724
  13. ACTOS [Concomitant]
     Route: 048
     Dates: start: 20070724
  14. SYNTHROID [Concomitant]
     Route: 048
     Dates: start: 20070724
  15. PENICILLINE [Concomitant]

REACTIONS (1)
  - ORTHOSTATIC HYPOTENSION [None]
